FAERS Safety Report 7729664-1 (Version None)
Quarter: 2011Q3

REPORT INFORMATION
  Report Type: 
  Country: None (occurrence: None)
  Receive Date: 20110901
  Receipt Date: 20110901
  Transmission Date: 20111222
  Serious: Yes (Hospitalization)
  Sender: FDA-Public Use
  Company Number: None

PATIENT
  Sex: Female
  Weight: 63.5 kg

DRUGS (2)
  1. TAXOL [Suspect]
     Dosage: 290 MG
  2. CARBOPLATIN [Suspect]
     Dosage: 654 MG

REACTIONS (3)
  - NEUTROPENIA [None]
  - PYREXIA [None]
  - SMALL INTESTINAL OBSTRUCTION [None]
